FAERS Safety Report 7990485-6 (Version None)
Quarter: 2011Q4

REPORT INFORMATION
  Report Type: 
  Country: None (occurrence: None)
  Receive Date: 20111219
  Receipt Date: 20111004
  Transmission Date: 20120403
  Serious: No
  Sender: FDA-Public Use
  Company Number: US-ASTRAZENECA-2011SE39646

PATIENT
  Age: 70 Year
  Sex: Male

DRUGS (2)
  1. CRESTOR [Suspect]
     Route: 048
  2. VIMOVO [Suspect]
     Route: 048

REACTIONS (4)
  - MUSCULOSKELETAL PAIN [None]
  - LIMB DISCOMFORT [None]
  - ARTHRALGIA [None]
  - DRUG DOSE OMISSION [None]
